FAERS Safety Report 6813694-8 (Version None)
Quarter: 2010Q3

REPORT INFORMATION
  Report Type: 
  Country: None (occurrence: None)
  Receive Date: 20100701
  Receipt Date: 20090821
  Transmission Date: 20110219
  Serious: Yes (Other)
  Sender: FDA-Public Use
  Company Number: US-BAXTER-2009BH013154

PATIENT
  Age: 3 Month
  Sex: Female

DRUGS (1)
  1. DOPAMINE HCL IN 5% DEXTROSE [Suspect]
     Indication: HAEMODYNAMIC INSTABILITY
     Route: 042

REACTIONS (2)
  - BRACHIAL PLEXUS INJURY [None]
  - EXTRAVASATION [None]
